FAERS Safety Report 5901998-2 (Version None)
Quarter: 2008Q3

REPORT INFORMATION
  Report Type: 
  Country: None (occurrence: None)
  Receive Date: 20080909
  Receipt Date: 20080619
  Transmission Date: 20090109
  Serious: Yes (Other)
  Sender: FDA-Public Use
  Company Number: US-WYE-H04648508

PATIENT
  Age: 36 Year
  Sex: Female
  Weight: 61.74 kg

DRUGS (1)
  1. ADVIL [Suspect]
     Indication: DYSMENORRHOEA
     Dosage: 2 CAPSULES X 1, ORAL
     Route: 048
     Dates: start: 20080618, end: 20080618

REACTIONS (1)
  - CHEST PAIN [None]
